FAERS Safety Report 8193799-2 (Version None)
Quarter: 2012Q1

REPORT INFORMATION
  Report Type: 
  Country: None (occurrence: None)
  Receive Date: 20120308
  Receipt Date: 20120223
  Transmission Date: 20120608
  Serious: Yes (Hospitalization, Other)
  Sender: FDA-Public Use
  Company Number: CHPA2012FR004077

PATIENT
  Sex: Female

DRUGS (18)
  1. MABCAMPATH [Suspect]
     Dosage: 30 MG AT EACH INJECTION
     Route: 058
     Dates: start: 20111125, end: 20111125
  2. PENTACARINAT ^AVENTIS^ [Concomitant]
  3. BACTRIM [Concomitant]
     Dosage: UNK, UNK
  4. ZYMAD [Suspect]
     Dosage: UNK, UNK
     Route: 048
  5. MABCAMPATH [Suspect]
     Dosage: 30 MG AT EACH INJECTION
     Route: 058
     Dates: start: 20111027, end: 20111027
  6. NEULASTA [Concomitant]
     Dosage: UNK, UNK
  7. ACYCLOVIR [Suspect]
     Dosage: UNK, UNK
     Route: 048
  8. CRESTOR [Suspect]
     Dosage: UNK, UNK
     Route: 048
  9. ZELITREX                                /NET/ [Concomitant]
     Dosage: UNK, UNK
  10. MABCAMPATH [Suspect]
     Indication: CHRONIC LYMPHOCYTIC LEUKAEMIA
     Dosage: UNK, 3 TIMES A WEEK
     Route: 058
     Dates: start: 20110705, end: 20110930
  11. MABCAMPATH [Suspect]
     Dosage: 30 MG AT EACH INJECTION
     Route: 058
     Dates: start: 20111223, end: 20111223
  12. CORTICOSTEROIDS [Suspect]
  13. FLUOXETINE HCL [Suspect]
     Dosage: UNK, UNK
     Route: 048
  14. LEVOTHYROXINE SODIUM [Suspect]
     Dosage: UNK, UNK
     Route: 048
  15. ESOMEPRAZOLE SODIUM [Suspect]
     Dosage: UNK, UNK
     Route: 048
  16. ACETAMINOPHEN [Concomitant]
     Dosage: UNK, UNK
  17. MABCAMPATH [Suspect]
     Dosage: 30 MG AT EACH INJECTION
     Route: 058
     Dates: start: 20111110, end: 20111110
  18. ANTIHISTAMINES [Concomitant]
     Dosage: UNK, UNK

REACTIONS (9)
  - ALVEOLITIS [None]
  - HAEMORRHAGE [None]
  - INFLAMMATION [None]
  - COMPUTERISED TOMOGRAM THORAX ABNORMAL [None]
  - COUGH [None]
  - DYSPNOEA [None]
  - HYPOXIA [None]
  - INTERSTITIAL LUNG DISEASE [None]
  - PYREXIA [None]
